FAERS Safety Report 5489746-4 (Version None)
Quarter: 2007Q4

REPORT INFORMATION
  Report Type: 
  Country: None (occurrence: None)
  Receive Date: 20071017
  Receipt Date: 20071017
  Transmission Date: 20080405
  Serious: Yes (Other)
  Sender: FDA-Public Use
  Company Number: None

PATIENT
  Sex: Female
  Weight: 59.4212 kg

DRUGS (2)
  1. OMEPRAZOLE [Suspect]
     Indication: GASTROOESOPHAGEAL REFLUX DISEASE
     Dosage: 20MG ONCE DAILY
     Dates: end: 20041101
  2. OMEPRAZOLE [Suspect]
     Indication: OESOPHAGEAL STENOSIS
     Dosage: 20MG ONCE DAILY
     Dates: end: 20041101

REACTIONS (2)
  - PHARMACEUTICAL PRODUCT COMPLAINT [None]
  - TREATMENT FAILURE [None]
